FAERS Safety Report 10381386 (Version 1)
Quarter: 2014Q3

REPORT INFORMATION
  Report Type: Spontaneous
  Country: US (occurrence: None)
  Receive Date: 20140812
  Receipt Date: 20140812
  Transmission Date: 20150326
  Serious: Yes (Hospitalization)
  Sender: FDA-Public Use
  Company Number: None

PATIENT
  Age: 20 Year
  Sex: Female
  Weight: 60.2 kg

DRUGS (6)
  1. PROCHLORPERAZINE. [Concomitant]
     Active Substance: PROCHLORPERAZINE
  2. LENALIDOMIDE [Suspect]
     Active Substance: LENALIDOMIDE
     Indication: HODGKIN^S DISEASE
     Route: 048
     Dates: start: 20140726, end: 20140810
  3. LORAZEPAM. [Concomitant]
     Active Substance: LORAZEPAM
  4. ACYCLOVIR. [Concomitant]
     Active Substance: ACYCLOVIR
  5. OXYCODONE [Concomitant]
     Active Substance: OXYCODONE
  6. COLACE [Concomitant]
     Active Substance: DOCUSATE SODIUM

REACTIONS (1)
  - Pancreatitis [None]

NARRATIVE: CASE EVENT DATE: 20140810
